FAERS Safety Report 6386457-8 (Version None)
Quarter: 2009Q4

REPORT INFORMATION
  Report Type: 
  Country: None (occurrence: None)
  Receive Date: 20091002
  Receipt Date: 20090522
  Transmission Date: 20100525
  Serious: No
  Sender: FDA-Public Use
  Company Number: US-ASTRAZENECA-2009UW13319

PATIENT
  Age: 58 Year
  Sex: Female
  Weight: 70.3 kg

DRUGS (5)
  1. ARIMIDEX [Suspect]
     Indication: BREAST CANCER
     Route: 048
     Dates: start: 20060101
  2. NITROGLYCERIN [Concomitant]
  3. LEVOTHROID [Concomitant]
  4. CYMBALTA [Concomitant]
  5. ATENOLOL [Concomitant]

REACTIONS (4)
  - BONE PAIN [None]
  - CHEST PAIN [None]
  - EXTRASYSTOLES [None]
  - WEIGHT INCREASED [None]
